FAERS Safety Report 11666494 (Version 5)
Quarter: 2015Q4

REPORT INFORMATION
  Report Type: Report from Study
  Country: GH (occurrence: GH)
  Receive Date: 20151027
  Receipt Date: 20151217
  Transmission Date: 20160304
  Serious: Yes (Other)
  Sender: FDA-Public Use
  Company Number: PHHY2015GH137885

PATIENT
  Age: 74 Year
  Sex: Male
  Weight: 85 kg

DRUGS (1)
  1. GLIVEC [Suspect]
     Active Substance: IMATINIB MESYLATE
     Indication: GASTROINTESTINAL STROMAL TUMOUR
     Dosage: 400 MG, QD
     Route: 048
     Dates: start: 20141124, end: 20151009

REACTIONS (10)
  - Oral disorder [Unknown]
  - Feeding disorder [Unknown]
  - Lichenoid keratosis [Unknown]
  - Stomatitis [Unknown]
  - Dysphagia [Unknown]
  - Kaposi^s sarcoma [Unknown]
  - Rash [Not Recovered/Not Resolved]
  - Second primary malignancy [Unknown]
  - Skin lesion [Unknown]
  - Drug intolerance [Not Recovered/Not Resolved]

NARRATIVE: CASE EVENT DATE: 20150828
